FAERS Safety Report 7907141-2 (Version None)
Quarter: 2011Q4

REPORT INFORMATION
  Report Type: 
  Country: None (occurrence: None)
  Receive Date: 20111110
  Receipt Date: 20110914
  Transmission Date: 20120403
  Serious: No
  Sender: FDA-Public Use
  Company Number: US-ASTRAZENECA-2011SE22702

PATIENT
  Age: 57 Year
  Sex: Male

DRUGS (17)
  1. PAROXETINE HCL [Concomitant]
     Route: 048
  2. HYDROCHLOROTHIAZIDE [Concomitant]
     Route: 048
  3. SINGULAIR [Concomitant]
     Route: 048
  4. AMLODIPINE [Concomitant]
     Route: 048
  5. SEROQUEL XR [Suspect]
     Indication: SLEEP DISORDER
     Route: 048
  6. SIMVASTATIN [Concomitant]
     Route: 048
  7. VIAGRA [Concomitant]
     Route: 048
  8. EPINEPHRINE [Concomitant]
     Dosage: 0.3 MG/0.3 ML
     Route: 030
  9. SEROQUEL XR [Suspect]
     Route: 048
  10. KLONOPIN [Concomitant]
     Route: 048
  11. ALBUTEROL [Concomitant]
     Dosage: 90 MCG/ACTUATION
     Route: 055
  12. FLONASE [Concomitant]
     Dosage: 50 MCG/ACTUATION
     Route: 045
  13. ALBUTEROL [Concomitant]
     Dosage: 2.5 MG/3 ML
     Route: 055
  14. EPINEPHRINE [Concomitant]
  15. EXCEDRIN (MIGRAINE) [Concomitant]
     Dosage: 250-250-65 MG
     Route: 048
  16. LISINOPRIL [Suspect]
     Route: 048
  17. ADVAIR DISKUS 100/50 [Concomitant]
     Dosage: 250-50 MCG/DOSE DS DV
     Route: 055

REACTIONS (5)
  - DRUG HYPERSENSITIVITY [None]
  - DRUG INEFFECTIVE FOR UNAPPROVED INDICATION [None]
  - SWELLING [None]
  - OFF LABEL USE [None]
  - INSOMNIA [None]
